FAERS Safety Report 7080147-4 (Version None)
Quarter: 2010Q4

REPORT INFORMATION
  Report Type: 
  Country: None (occurrence: None)
  Receive Date: 20101103
  Receipt Date: 20101020
  Transmission Date: 20110411
  Serious: Yes (Hospitalization)
  Sender: FDA-Public Use
  Company Number: JP-AMGEN-QUU440928

PATIENT

DRUGS (9)
  1. ENBREL [Suspect]
     Indication: RHEUMATOID ARTHRITIS
     Dosage: 25 MG, QWK
     Route: 058
     Dates: start: 20100601, end: 20100818
  2. METHOTREXATE SODIUM [Suspect]
     Indication: RHEUMATOID ARTHRITIS
     Dosage: UNK UNK, UNK
     Route: 048
  3. METHOTREXATE SODIUM [Suspect]
     Dosage: UNSPECIFIED
     Route: 048
  4. RELIFEN [Concomitant]
     Indication: RHEUMATOID ARTHRITIS
     Route: 048
     Dates: end: 20100914
  5. BONALON [Concomitant]
     Indication: OSTEOPOROSIS
     Dosage: 1 DF/WEEK
     Route: 048
  6. ZANTAC [Concomitant]
  7. NITRENDIPINE [Concomitant]
     Indication: HYPERTENSION
     Route: 048
  8. FOLIAMIN [Concomitant]
     Route: 048
     Dates: end: 20100824
  9. MUCOSTA [Concomitant]
     Route: 048

REACTIONS (2)
  - INTERSTITIAL LUNG DISEASE [None]
  - PNEUMOCYSTIS JIROVECI PNEUMONIA [None]
